FAERS Safety Report 11993268 (Version 1)
Quarter: 2016Q1

REPORT INFORMATION
  Report Type: Spontaneous
  Country: US (occurrence: None)
  Receive Date: 20160202
  Receipt Date: 20160202
  Transmission Date: 20160526
  Serious: Yes (Other)
  Sender: FDA-Public Use
  Company Number: None

PATIENT
  Age: 12 Year
  Sex: Female
  Weight: 65.32 kg

DRUGS (1)
  1. AMPHETAMINE SULFATE ER (ACTAVIS) [Suspect]
     Active Substance: AMPHETAMINE SULFATE
     Indication: ATTENTION DEFICIT/HYPERACTIVITY DISORDER
     Route: 048
     Dates: start: 20160126

REACTIONS (4)
  - Fall [None]
  - Confusional state [None]
  - Disorientation [None]
  - Seizure [None]

NARRATIVE: CASE EVENT DATE: 20160126
